FAERS Safety Report 5824297-6 (Version None)
Quarter: 2008Q3

REPORT INFORMATION
  Report Type: 
  Country: None (occurrence: None)
  Receive Date: 20080728
  Receipt Date: 20080721
  Transmission Date: 20090109
  Serious: Yes (Death)
  Sender: FDA-Public Use
  Company Number: NL-AVENTIS-200816959GDDC

PATIENT
  Age: 78 Year
  Sex: Female

DRUGS (8)
  1. RIFADIN [Suspect]
     Indication: ABSCESS
     Route: 048
     Dates: start: 20070214
  2. FLOXACILLIN SODIUM [Concomitant]
     Dates: start: 20070214
  3. DICLOFENAX [Concomitant]
  4. VALSARTAN [Concomitant]
  5. FERROFUMARATE [Concomitant]
  6. GRANISETRON HCL [Concomitant]
  7. PANTOPRAZOLE SODIUM [Concomitant]
  8. MORPHINE [Concomitant]

REACTIONS (2)
  - CONDITION AGGRAVATED [None]
  - RENAL FAILURE [None]
